FAERS Safety Report 4598523-8 (Version None)
Quarter: 2005Q1

REPORT INFORMATION
  Report Type: 
  Country: None (occurrence: None)
  Receive Date: 20050304
  Receipt Date: 20050223
  Transmission Date: 20050727
  Serious: Yes (Other)
  Sender: FDA-Public Use
  Company Number: US-GLAXOSMITHKLINE-A0546915A

PATIENT
  Age: 71 Year
  Sex: Female

DRUGS (1)
  1. SENSODYNE ORIGINAL FLAVOR TOOTHPASTE [Suspect]
     Indication: DENTAL CLEANING
     Dates: start: 19850101

REACTIONS (3)
  - BREAST CANCER [None]
  - BREAST CANCER FEMALE [None]
  - VAGINAL CANCER [None]
